FAERS Safety Report 5926179-8 (Version None)
Quarter: 2008Q4

REPORT INFORMATION
  Report Type: 
  Country: None (occurrence: None)
  Receive Date: 20081017
  Receipt Date: 20081002
  Transmission Date: 20090506
  Serious: Yes (Other)
  Sender: FDA-Public Use
  Company Number: 034742

PATIENT
  Sex: Female

DRUGS (1)
  1. CLARAVIS [Suspect]
     Indication: ACNE CYSTIC
     Dosage: 30 MG,BID,ORAL
     Route: 048
     Dates: start: 20080310, end: 20080817

REACTIONS (2)
  - OPTIC NEURITIS [None]
  - UVEITIS [None]
